FAERS Safety Report 7173453-6 (Version None)
Quarter: 2010Q4

REPORT INFORMATION
  Report Type: 
  Country: None (occurrence: None)
  Receive Date: 20101219
  Receipt Date: 20100301
  Transmission Date: 20110411
  Serious: No
  Sender: FDA-Public Use
  Company Number: US-AMGEN-KDL396215

PATIENT

DRUGS (2)
  1. ENBREL [Suspect]
     Indication: PSORIASIS
     Dosage: 50 MG, 2 TIMES/WK
     Route: 058
     Dates: start: 20100119
  2. METHOTREXATE [Concomitant]
     Dosage: 2.5 MG, QWK
     Route: 048
     Dates: start: 20070220

REACTIONS (5)
  - COUGH [None]
  - FEELING HOT [None]
  - LACRIMATION INCREASED [None]
  - PYREXIA [None]
  - RHINORRHOEA [None]
